FAERS Safety Report 7315641-1 (Version None)
Quarter: 2011Q1

REPORT INFORMATION
  Report Type: 
  Country: None (occurrence: None)
  Receive Date: 20110225
  Receipt Date: 20110214
  Transmission Date: 20110831
  Serious: Yes (Hospitalization)
  Sender: FDA-Public Use
  Company Number: PHHY2011DE12456

PATIENT
  Age: 51 Year
  Sex: Male

DRUGS (7)
  1. VINCRISTINE [Suspect]
     Dosage: 2 MG, UNK
  2. CYCLOPHOSPHAMIDE [Suspect]
     Dosage: 750 MG/M2, UNK
  3. RITUXIMAB [Suspect]
     Dosage: 375 MG/M2, UNK
  4. MESNA [Suspect]
     Indication: PROPHYLAXIS
  5. PREDNISOLONE [Suspect]
     Dosage: 100 MG, UNK
  6. DOXORUBICIN [Suspect]
     Dosage: 50 MG/M2, UNK
  7. ONDANSETRON [Suspect]
     Indication: PROPHYLAXIS

REACTIONS (7)
  - C-REACTIVE PROTEIN INCREASED [None]
  - INTESTINAL ISCHAEMIA [None]
  - GASTROINTESTINAL NECROSIS [None]
  - HAEMATOCHEZIA [None]
  - COLITIS ISCHAEMIC [None]
  - ABDOMINAL PAIN [None]
  - INTESTINAL HAEMORRHAGE [None]
